FAERS Safety Report 6521580-6 (Version None)
Quarter: 2009Q4

REPORT INFORMATION
  Report Type: 
  Country: None (occurrence: None)
  Receive Date: 20091230
  Receipt Date: 20091216
  Transmission Date: 20100525
  Serious: Yes (Hospitalization)
  Sender: FDA-Public Use
  Company Number: PHHY2009FR31177

PATIENT
  Sex: Male
  Weight: 65 kg

DRUGS (2)
  1. CGP 57148B T35717+ [Suspect]
     Indication: CHRONIC MYELOID LEUKAEMIA
     Dosage: 400 MG/DAY
  2. BLOOD TRANSFUSION, AUXILIARY PRODUCTS [Concomitant]

REACTIONS (6)
  - HAEMOGLOBIN DECREASED [None]
  - HELICOBACTER GASTRITIS [None]
  - INTRA-ABDOMINAL HAEMANGIOMA [None]
  - LYMPHOPENIA [None]
  - NEUTROPENIA [None]
  - NORMOCHROMIC NORMOCYTIC ANAEMIA [None]
